FAERS Safety Report 24805240 (Version 1)
Quarter: 2025Q1

REPORT INFORMATION
  Report Type: Spontaneous
  Country: US (occurrence: US)
  Receive Date: 20250103
  Receipt Date: 20250103
  Transmission Date: 20250408
  Serious: Yes (Hospitalization, Other)
  Sender: DR REDDYS
  Company Number: US-DRL-USA-LIT/USA/24/0019288

PATIENT
  Age: 61 Year
  Sex: Female

DRUGS (10)
  1. FLUCONAZOLE [Suspect]
     Active Substance: FLUCONAZOLE
     Indication: Antifungal prophylaxis
     Route: 048
  2. OMEPRAZOLE [Suspect]
     Active Substance: OMEPRAZOLE
     Indication: Gastrooesophageal reflux disease
  3. ONDANSETRON [Suspect]
     Active Substance: ONDANSETRON
     Indication: Gastrooesophageal reflux disease
  4. PEMBROLIZUMAB [Concomitant]
     Active Substance: PEMBROLIZUMAB
     Indication: Rectosigmoid cancer
  5. INSULIN NOS [Concomitant]
     Active Substance: INSULIN NOS
     Indication: Type 2 diabetes mellitus
  6. DIPHENHYDRAMINE [Concomitant]
     Active Substance: DIPHENHYDRAMINE
     Indication: SJS-TEN overlap
  7. ALBUTEROL [Concomitant]
     Active Substance: ALBUTEROL
     Indication: SJS-TEN overlap
  8. METHYLPREDNISOLONE [Concomitant]
     Active Substance: METHYLPREDNISOLONE
     Indication: SJS-TEN overlap
  9. PREDNISONE [Concomitant]
     Active Substance: PREDNISONE
     Indication: SJS-TEN overlap
     Route: 048
  10. RUXOLITINIB [Concomitant]
     Active Substance: RUXOLITINIB
     Indication: SJS-TEN overlap
     Route: 048

REACTIONS (2)
  - SJS-TEN overlap [Recovering/Resolving]
  - Product use in unapproved indication [Unknown]
